FAERS Safety Report 9661257 (Version 1)
Quarter: 2013Q4

REPORT INFORMATION
  Report Type: Spontaneous
  Country: US (occurrence: None)
  Receive Date: 20131030
  Receipt Date: 20131030
  Transmission Date: 20140711
  Serious: No
  Sender: FDA-Public Use
  Company Number: 2012257917

PATIENT
  Age: 62 Year
  Sex: Female

DRUGS (1)
  1. FRAGMIN (DALTEPARIN SODIUIM) SOLUTION FOR INJECTION [Suspect]
     Indication: ANTICOAGULANT THERAPY
     Dosage: SYRINGE X 10
     Route: 058
     Dates: start: 201204

REACTIONS (4)
  - Product quality issue [None]
  - Underdose [None]
  - Injection site pain [None]
  - Injection site haematoma [None]
